FAERS Safety Report 6316869-X (Version None)
Quarter: 2009Q3

REPORT INFORMATION
  Report Type: 
  Country: None (occurrence: None)
  Receive Date: 20090820
  Receipt Date: 20090810
  Transmission Date: 20100115
  Serious: Yes (Death, Other)
  Sender: FDA-Public Use
  Company Number: CA-ELI_LILLY_AND_COMPANY-CA200908002697

PATIENT
  Sex: Female

DRUGS (4)
  1. CYMBALTA [Suspect]
  2. EPIVAL [Concomitant]
     Route: 048
  3. METHYLPHENIDATE HCL [Concomitant]
     Route: 048
  4. CLONIDINE [Concomitant]

REACTIONS (2)
  - DEATH [None]
  - TONSIL CANCER [None]
